FAERS Safety Report 8783777 (Version 1)
Quarter: 2012Q4

REPORT INFORMATION
  Report Type: 
  Country: DE (occurrence: DE)
  Receive Date: 20120913
  Receipt Date: 20120913
  Transmission Date: 20130627
  Serious: Yes (Other)
  Sender: FDA-Public Use
  Company Number: DE-B.I. PHARMACEUTICALS,INC./RIDGEFIELD-2012-DE-01195DE

PATIENT
  Age: 73 Year
  Sex: Female
  Weight: 91 kg

DRUGS (3)
  1. PRADAXA [Suspect]
     Indication: CEREBRAL ISCHAEMIA
     Dosage: 220 mg
     Route: 048
     Dates: start: 20111020, end: 20120601
  2. VOCADO [Concomitant]
     Indication: HYPERTENSION
     Dosage: strength: 1x 40/10/12.5
     Route: 048
  3. SIMVASTATIN [Concomitant]
     Indication: HYPERLIPIDAEMIA
     Dosage: 40 NR

REACTIONS (2)
  - Thrombocytopenia [Recovered/Resolved]
  - False positive investigation result [Recovered/Resolved]
